FAERS Safety Report 5700727-5 (Version None)
Quarter: 2008Q2

REPORT INFORMATION
  Report Type: 
  Country: None (occurrence: None)
  Receive Date: 20080410
  Receipt Date: 20080121
  Transmission Date: 20081010
  Serious: No
  Sender: FDA-Public Use
  Company Number: A0706117A

PATIENT
  Sex: Female

DRUGS (3)
  1. TYKERB [Suspect]
     Route: 048
  2. XELODA [Suspect]
     Route: 065
  3. REMERON [Suspect]
     Indication: DEPRESSION
     Route: 065

REACTIONS (8)
  - ANXIETY [None]
  - DECREASED INTEREST [None]
  - DEPRESSION [None]
  - DISSOCIATION [None]
  - DRUG INEFFECTIVE [None]
  - FEELING ABNORMAL [None]
  - FEELING OF DESPAIR [None]
  - IMPATIENCE [None]
